FAERS Safety Report 7560088-6 (Version None)
Quarter: 2011Q2

REPORT INFORMATION
  Report Type: 
  Country: None (occurrence: None)
  Receive Date: 20110621
  Receipt Date: 20090623
  Transmission Date: 20111010
  Serious: Yes (Hospitalization)
  Sender: FDA-Public Use
  Company Number: A0794741A

PATIENT
  Age: 51 Year
  Sex: Male

DRUGS (1)
  1. AVANDIA [Suspect]
     Dosage: 8MG THREE TIMES PER DAY
     Route: 048
     Dates: start: 20050919, end: 20070911

REACTIONS (3)
  - DYSPNOEA [None]
  - CARDIAC PACEMAKER INSERTION [None]
  - ATRIAL FIBRILLATION [None]
